FAERS Safety Report 6812239-6 (Version None)
Quarter: 2010Q3

REPORT INFORMATION
  Report Type: 
  Country: None (occurrence: None)
  Receive Date: 20100701
  Receipt Date: 20100622
  Transmission Date: 20110219
  Serious: Yes (Hospitalization)
  Sender: FDA-Public Use
  Company Number: JP-SANOFI-AVENTIS-2010SA024483

PATIENT
  Age: 66 Year
  Sex: Male
  Weight: 51 kg

DRUGS (27)
  1. OXALIPLATIN [Suspect]
     Indication: RECTAL CANCER
     Route: 041
     Dates: start: 20091221, end: 20091221
  2. OXALIPLATIN [Suspect]
     Route: 041
     Dates: start: 20100412, end: 20100412
  3. CALCIUM LEVOFOLINATE [Suspect]
     Indication: RECTAL CANCER
     Route: 041
     Dates: start: 20091221, end: 20091221
  4. CALCIUM LEVOFOLINATE [Suspect]
     Route: 041
     Dates: start: 20100412, end: 20100412
  5. FLUOROURACIL [Suspect]
     Indication: RECTAL CANCER
     Route: 040
     Dates: start: 20091221, end: 20091221
  6. FLUOROURACIL [Suspect]
     Route: 041
     Dates: start: 20091221, end: 20091222
  7. FLUOROURACIL [Suspect]
     Route: 040
     Dates: start: 20100412, end: 20100412
  8. FLUOROURACIL [Suspect]
     Route: 041
     Dates: start: 20100412, end: 20100413
  9. AVASTIN [Suspect]
     Indication: RECTAL CANCER
     Route: 041
     Dates: start: 20091221, end: 20091221
  10. AVASTIN [Suspect]
     Route: 041
     Dates: start: 20100412, end: 20100412
  11. LOXOPROFEN [Suspect]
     Indication: ABDOMINAL PAIN
     Route: 048
     Dates: start: 20091119, end: 20100421
  12. AMLODIN [Suspect]
     Indication: HYPERTENSION
     Route: 048
     Dates: start: 20100104, end: 20100421
  13. RIVOTRIL [Suspect]
     Route: 048
     Dates: start: 20100215
  14. BENZETHONIUM CHLORIDE [Suspect]
     Indication: PERIODONTITIS
     Route: 002
     Dates: start: 20100215, end: 20100421
  15. HALCION [Suspect]
     Route: 048
     Dates: start: 20100315
  16. GOSHAJINKIGAN [Suspect]
     Route: 048
     Dates: start: 20100412
  17. BUPRENORPHINE HCL [Suspect]
     Indication: PAIN MANAGEMENT
     Route: 041
     Dates: start: 20100422, end: 20100424
  18. PENTAZOCINE LACTATE [Suspect]
     Indication: DUODENAL ULCER PERFORATION
     Route: 058
     Dates: start: 20100422, end: 20100422
  19. TAKEPRON [Suspect]
     Indication: DUODENAL ULCER PERFORATION
     Route: 042
     Dates: start: 20100421, end: 20100428
  20. MEROPEN [Suspect]
     Indication: DUODENAL ULCER PERFORATION
     Route: 041
     Dates: start: 20100421, end: 20100427
  21. CLARUTE [Suspect]
     Indication: DUODENAL ULCER PERFORATION
     Route: 041
     Dates: start: 20100422, end: 20100423
  22. FAMOTIDINE [Suspect]
     Indication: DUODENAL ULCER PERFORATION
     Route: 042
     Dates: start: 20100428
  23. LANSOPRAZOLE [Suspect]
     Indication: DUODENAL ULCER PERFORATION
     Route: 048
     Dates: start: 20100508
  24. ALLOID [Suspect]
     Indication: DUODENAL ULCER PERFORATION
     Route: 048
     Dates: start: 20100530
  25. ULCERLMIN [Suspect]
     Indication: DUODENAL ULCER PERFORATION
     Route: 048
     Dates: start: 20100530
  26. TAKEPRON [Suspect]
     Route: 048
     Dates: start: 20100601
  27. CALONAL [Suspect]
     Route: 048

REACTIONS (1)
  - DUODENAL ULCER PERFORATION [None]
